FAERS Safety Report 6549749-5 (Version None)
Quarter: 2010Q1

REPORT INFORMATION
  Report Type: 
  Country: None (occurrence: None)
  Receive Date: 20100125
  Receipt Date: 20100119
  Transmission Date: 20100710
  Serious: Yes (Hospitalization)
  Sender: FDA-Public Use
  Company Number: FR-BAYER-201012894GPV

PATIENT
  Age: 87 Year
  Sex: Male

DRUGS (12)
  1. IZILOX [Suspect]
     Indication: LUNG INFECTION
     Route: 048
     Dates: start: 20090227, end: 20090228
  2. NUREFLEX L.P. [Suspect]
     Indication: HYGROMA COLLI
     Dosage: UNIT DOSE: 300 MG
     Route: 048
     Dates: end: 20090227
  3. KETOPROFEN [Suspect]
     Indication: HYGROMA COLLI
     Route: 048
     Dates: start: 20090224, end: 20090227
  4. PREVISCAN [Suspect]
     Indication: MYOCARDIAL ISCHAEMIA
     Route: 048
  5. CARDENSIEL [Concomitant]
     Indication: MYOCARDIAL ISCHAEMIA
     Dosage: LONG-TERM TREATMENT
     Route: 048
  6. COVERSYL [Concomitant]
     Indication: MYOCARDIAL ISCHAEMIA
     Dosage: LONG-TERM TREATMENT
     Route: 048
  7. HEMIGOXINE NATIVELLE [Concomitant]
  8. CORDARONE [Concomitant]
  9. RISPERDAL [Concomitant]
  10. NITRODERM [Concomitant]
  11. DUPHALAC [Concomitant]
     Dosage: 1 BAG THRICE DAILY
  12. TUSSIDANE [Concomitant]

REACTIONS (1)
  - RECTAL HAEMORRHAGE [None]
